FAERS Safety Report 5239223-0 (Version None)
Quarter: 2007Q1

REPORT INFORMATION
  Report Type: 
  Country: None (occurrence: None)
  Receive Date: 20061208
  Receipt Date: 20050531
  Transmission Date: 20070707
  Serious: Yes (Other)
  Sender: FDA-Public Use
  Company Number: 2005UW08438

PATIENT
  Age: 59 Year
  Sex: Male
  Weight: 92.986 kg

DRUGS (3)
  1. CRESTOR [Suspect]
     Indication: BLOOD CHOLESTEROL INCREASED
     Dosage: 10 MG DAILY PO
     Route: 048
     Dates: start: 20050201, end: 20050401
  2. ASPIRIN [Concomitant]
  3. VITAMINS [Concomitant]

REACTIONS (7)
  - ARTHRALGIA [None]
  - ASTHENIA [None]
  - FATIGUE [None]
  - INSOMNIA [None]
  - MYALGIA [None]
  - NOCTURIA [None]
  - SOMNOLENCE [None]
